FAERS Safety Report 22177176 (Version 1)
Quarter: 2023Q2

REPORT INFORMATION
  Report Type: Spontaneous
  Country: BR (occurrence: BR)
  Receive Date: 20230405
  Receipt Date: 20230405
  Transmission Date: 20230722
  Serious: Yes (Hospitalization, Other)
  Sender: FDA-Public Use
  Company Number: BR-BAYER-2022A056720

PATIENT
  Age: 34 Year
  Sex: Female

DRUGS (1)
  1. KYLEENA [Suspect]
     Active Substance: LEVONORGESTREL
     Indication: Contraception
     Dosage: 17.5?G/DAY
     Route: 015
     Dates: start: 20210923, end: 20220321

REACTIONS (14)
  - Ectopic pregnancy with contraceptive device [None]
  - Ruptured ectopic pregnancy [None]
  - Intra-abdominal haemorrhage [None]
  - Syncope [None]
  - Pelvic pain [None]
  - Drug ineffective [None]
  - Abdominal distension [None]
  - Urinary tract infection [Not Recovered/Not Resolved]
  - Hypertonic bladder [None]
  - Emotional disorder [None]
  - Hypotension [None]
  - Anxiety [None]
  - Panic attack [None]
  - Abdominal pain [None]

NARRATIVE: CASE EVENT DATE: 20220320
